FAERS Safety Report 24316489 (Version 1)
Quarter: 2024Q3

REPORT INFORMATION
  Report Type: Spontaneous
  Country: CN (occurrence: CN)
  Receive Date: 20240913
  Receipt Date: 20240913
  Transmission Date: 20241017
  Serious: Yes (Life-Threatening)
  Sender: BEIGENE
  Company Number: CN-BEIGENE-BGN-2024-014466

PATIENT

DRUGS (3)
  1. TISLELIZUMAB [Suspect]
     Active Substance: TISLELIZUMAB
     Indication: Metastasis
     Dosage: 200 MILLIGRAM
     Route: 041
     Dates: start: 20240830
  2. DOCETAXEL [Suspect]
     Active Substance: DOCETAXEL\DOCETAXEL ANHYDROUS
     Indication: Metastasis
     Dosage: 120 MILLIGRAM
     Route: 041
     Dates: start: 20240830
  3. NEDAPLATIN [Suspect]
     Active Substance: NEDAPLATIN
     Indication: Metastasis
     Dosage: 60 MILLIGRAM
     Route: 041
     Dates: start: 20240831

REACTIONS (3)
  - White blood cell count decreased [Recovering/Resolving]
  - Neutrophil count decreased [Recovering/Resolving]
  - Platelet count decreased [Recovering/Resolving]

NARRATIVE: CASE EVENT DATE: 20240905
